FAERS Safety Report 7405439-8 (Version None)
Quarter: 2011Q2

REPORT INFORMATION
  Report Type: 
  Country: None (occurrence: None)
  Receive Date: 20110411
  Receipt Date: 20110331
  Transmission Date: 20111010
  Serious: Yes (Other)
  Sender: FDA-Public Use
  Company Number: US-AMGEN-USASP2011015250

PATIENT
  Age: 62 Year
  Sex: Female
  Weight: 81.633 kg

DRUGS (12)
  1. RENVELA [Concomitant]
     Dosage: 800 MG, TID
     Route: 048
  2. SLOW FE [Concomitant]
     Dosage: UNK UNK, QD
     Route: 048
     Dates: start: 20100823
  3. GENTAMICIN [Concomitant]
     Dosage: UNK
     Route: 047
     Dates: start: 20090306
  4. NORVASC [Concomitant]
     Dosage: 10 MG, QD
     Route: 048
     Dates: start: 20090203
  5. SENSIPAR [Suspect]
     Indication: HYPERPARATHYROIDISM SECONDARY
     Dosage: 60 MG, QD
     Route: 048
     Dates: start: 20101013
  6. DRISDOL [Concomitant]
     Dosage: 5000 IU, Q6MO
     Dates: start: 20110207
  7. PHOSLO [Concomitant]
     Dosage: 667 MG, TID
     Route: 048
  8. NEPHROCAPS [Concomitant]
     Dosage: UNK UNK, QD
     Route: 048
     Dates: start: 20100210
  9. TENORMIN [Concomitant]
     Dosage: 25 MG, QD
     Route: 048
     Dates: start: 20091218
  10. ZOCOR [Concomitant]
     Dosage: 20 MG, QD
     Route: 048
     Dates: start: 20091214
  11. SYNTHROID [Concomitant]
     Dosage: 0.5 UNK, UNK
  12. ZEMPLAR [Concomitant]
     Dosage: 1 A?G, QD
     Route: 048

REACTIONS (3)
  - THYROID FUNCTION TEST ABNORMAL [None]
  - BLOOD PARATHYROID HORMONE ABNORMAL [None]
  - BLOOD PHOSPHORUS ABNORMAL [None]
